FAERS Safety Report 6604667-9 (Version None)
Quarter: 2010Q1

REPORT INFORMATION
  Report Type: 
  Country: None (occurrence: None)
  Receive Date: 20100226
  Receipt Date: 20100212
  Transmission Date: 20100710
  Serious: Yes (Other)
  Sender: FDA-Public Use
  Company Number: US-ROCHE-681271

PATIENT
  Sex: Female

DRUGS (2)
  1. ISOTRETINOIN [Suspect]
     Indication: DRUG USE FOR UNKNOWN INDICATION
     Dosage: SHE WAS DISPENSED ACCUTANE 40 MG CAP ON 10DEC09,TAKEN AT DAILY DOSE FOR 3 DAYS AND TWICE ON 4TH DAY.
     Route: 065
     Dates: end: 20100101
  2. AMNESTEEM [Suspect]
     Indication: DRUG USE FOR UNKNOWN INDICATION
     Dosage: PATIENT WAS DISPENSED WITH 10 MG CAP AND 40 MG CAP ON SEVERAL DATES
     Route: 065

REACTIONS (1)
  - ABORTION INDUCED [None]
